FAERS Safety Report 23429498 (Version 1)
Quarter: 2024Q1

REPORT INFORMATION
  Report Type: Spontaneous
  Country: US (occurrence: US)
  Receive Date: 20240122
  Receipt Date: 20240122
  Transmission Date: 20240409
  Serious: Yes (Other)
  Sender: FDA-Public Use
  Company Number: US-PFIZER INC-202400013004

PATIENT
  Age: 67 Year
  Sex: Male
  Weight: 90.72 kg

DRUGS (1)
  1. PAXLOVID [Suspect]
     Active Substance: NIRMATRELVIR\RITONAVIR
     Indication: COVID-19 treatment
     Dosage: 3 TABLETS AT THE SAME TIME IN THE MORNING AND 3 TABLETS AT THE SAME TIME IN THE EVENING
     Route: 048
     Dates: start: 20230817, end: 20230818

REACTIONS (3)
  - Angioedema [Unknown]
  - Chronic spontaneous urticaria [Not Recovered/Not Resolved]
  - Expired product administered [Unknown]

NARRATIVE: CASE EVENT DATE: 20230818
